FAERS Safety Report 6388937-8 (Version None)
Quarter: 2009Q4

REPORT INFORMATION
  Report Type: 
  Country: None (occurrence: None)
  Receive Date: 20091001
  Receipt Date: 20090923
  Transmission Date: 20100525
  Serious: Yes (Death)
  Sender: FDA-Public Use
  Company Number: 2009AP002715

PATIENT
  Age: 63 Year
  Sex: Female

DRUGS (5)
  1. TOPIRAMATE [Suspect]
     Indication: EPILEPSY
     Dosage: 200 MG, PO
     Route: 048
  2. CARBAMAZEPINE [Suspect]
     Indication: EPILEPSY
     Dosage: PO
     Route: 048
     Dates: end: 20090311
  3. CARBAMAZEPINE [Suspect]
     Indication: EPILEPSY
     Dosage: PO
     Route: 048
     Dates: start: 20090312
  4. KEPPRA [Suspect]
     Indication: EPILEPSY
     Dosage: 250 MG, PO
     Route: 048
  5. VIMPAT [Suspect]
     Indication: PARTIAL SEIZURES
     Dosage: 100 MG; PO
     Route: 048
     Dates: start: 20090312

REACTIONS (3)
  - CHRONIC OBSTRUCTIVE PULMONARY DISEASE [None]
  - DYSPNOEA [None]
  - HYPONATRAEMIA [None]
